FAERS Safety Report 5442298-7 (Version None)
Quarter: 2007Q3

REPORT INFORMATION
  Report Type: 
  Country: None (occurrence: None)
  Receive Date: 20070904
  Receipt Date: 20070824
  Transmission Date: 20080115
  Serious: Yes (Hospitalization, Other)
  Sender: FDA-Public Use
  Company Number: JP-PFIZER INC-2007071186

PATIENT
  Age: 23 Year
  Sex: Female

DRUGS (2)
  1. HALCION [Suspect]
     Route: 048
  2. ALL OTHER THERAPEUTIC PRODUCTS [Suspect]

REACTIONS (3)
  - CHEST PAIN [None]
  - INTENTIONAL DRUG MISUSE [None]
  - SUICIDE ATTEMPT [None]
